FAERS Safety Report 8824882 (Version 1)
Quarter: 2012Q4

REPORT INFORMATION
  Report Type: 
  Country: TR (occurrence: TR)
  Receive Date: 20121004
  Receipt Date: 20121004
  Transmission Date: 20130627
  Serious: Yes (Death)
  Sender: FDA-Public Use
  Company Number: TR-ROCHE-1140665

PATIENT
  Age: 34 Year
  Sex: Female
  Weight: 52 kg

DRUGS (3)
  1. CAPECITABINE [Suspect]
     Indication: BREAST CANCER
     Dosage: 500 mg 2+2
     Route: 048
     Dates: start: 201101, end: 20120929
  2. CAPECITABINE [Suspect]
     Indication: METASTASES TO LIVER
  3. CAPECITABINE [Suspect]
     Indication: METASTASES TO BONE

REACTIONS (1)
  - Disease progression [Fatal]
